FAERS Safety Report 18767823 (Version 1)
Quarter: 2021Q1

REPORT INFORMATION
  Report Type: Spontaneous
  Country: US (occurrence: US)
  Receive Date: 20210120
  Receipt Date: 20210120
  Transmission Date: 20210419
  Serious: Yes (Life-Threatening, Hospitalization)
  Sender: FDA-Public Use
  Company Number: None

PATIENT
  Age: 66 Year
  Sex: Male
  Weight: 75 kg

DRUGS (1)
  1. IBUPROFEN (IBUPROFEN 400MG TAB) [Suspect]
     Active Substance: IBUPROFEN
     Indication: SPINAL OSTEOARTHRITIS
     Dates: start: 20140116, end: 20200818

REACTIONS (7)
  - Asthenia [None]
  - Haemoglobin decreased [None]
  - Dyspnoea exertional [None]
  - Fall [None]
  - Gastric ulcer haemorrhage [None]
  - Dizziness [None]
  - Abdominal pain [None]

NARRATIVE: CASE EVENT DATE: 20200818
